FAERS Safety Report 8223178-0 (Version None)
Quarter: 2012Q1

REPORT INFORMATION
  Report Type: 
  Country: None (occurrence: None)
  Receive Date: 20120321
  Receipt Date: 20120222
  Transmission Date: 20120608
  Serious: Yes (Other)
  Sender: FDA-Public Use
  Company Number: BR-ROCHE-1042653

PATIENT
  Sex: Female

DRUGS (1)
  1. BONIVA [Suspect]
     Indication: OSTEOPOROSIS
     Route: 042

REACTIONS (5)
  - BACK PAIN [None]
  - DISEASE PROGRESSION [None]
  - OSTEOPOROSIS [None]
  - SPINAL FRACTURE [None]
  - POSTURE ABNORMAL [None]
